FAERS Safety Report 20040649 (Version 1)
Quarter: 2021Q4

REPORT INFORMATION
  Report Type: Spontaneous
  Country: US (occurrence: None)
  Receive Date: 20211108
  Receipt Date: 20211108
  Transmission Date: 20220303
  Serious: Yes (Hospitalization, Disabling, Other)
  Sender: FDA-Public Use
  Company Number: None

PATIENT
  Age: 42 Year
  Sex: Female
  Weight: 81.9 kg

DRUGS (2)
  1. METHYLPREDNISOLONE [Suspect]
     Active Substance: METHYLPREDNISOLONE
     Indication: Dermatitis atopic
     Dosage: OTHER QUANTITY : 21 TABLET(S);?OTHER FREQUENCY : 6 DAY PACK;?
     Route: 048
     Dates: start: 20180410, end: 20180414
  2. VITAMIN D [Concomitant]
     Active Substance: VITAMIN D NOS

REACTIONS (8)
  - Arthralgia [None]
  - Therapy cessation [None]
  - Rash [None]
  - Osteonecrosis [None]
  - Arthralgia [None]
  - Hypersensitivity [None]
  - Hip arthroplasty [None]
  - Shoulder arthroplasty [None]

NARRATIVE: CASE EVENT DATE: 20180414
